FAERS Safety Report 25866276 (Version 2)
Quarter: 2025Q4

REPORT INFORMATION
  Report Type: Report from Study
  Country: US (occurrence: None)
  Receive Date: 20250930
  Receipt Date: 20251016
  Transmission Date: 20260117
  Serious: Yes (Other)
  Sender: UCB
  Company Number: US-UCBSA-2025019223

PATIENT
  Age: 51 Year
  Weight: 134 kg

DRUGS (4)
  1. BIMEKIZUMAB [Suspect]
     Active Substance: BIMEKIZUMAB
     Indication: Psoriasis
     Dosage: 320 MILLIGRAM, EV 4 WEEKS
  2. BIMEKIZUMAB [Suspect]
     Active Substance: BIMEKIZUMAB
     Dosage: 320 MILLIGRAM, EV 4 WEEKS
  3. BIMEKIZUMAB [Suspect]
     Active Substance: BIMEKIZUMAB
     Dosage: 320 MILLIGRAM, EV 8 WEEKS
  4. Vitamin D3 supplments [Concomitant]
     Indication: Menopause
     Dosage: 2000 IU, ONCE DAILY

REACTIONS (14)
  - Heavy menstrual bleeding [Not Recovered/Not Resolved]
  - Embedded device [Unknown]
  - Complication associated with device [Not Recovered/Not Resolved]
  - Injection site pain [Recovered/Resolved]
  - Injection site urticaria [Recovered/Resolved]
  - Diarrhoea [Recovered/Resolved]
  - Pain [Recovering/Resolving]
  - Irritable bowel syndrome [Unknown]
  - Abdominal pain upper [Unknown]
  - Injection site reaction [Unknown]
  - Psoriasis [Recovering/Resolving]
  - Device issue [Unknown]
  - Incorrect dose administered [Unknown]
  - Therapeutic response shortened [Unknown]
